FAERS Safety Report 8412338-1 (Version None)
Quarter: 2012Q2

REPORT INFORMATION
  Report Type: 
  Country: None (occurrence: None)
  Receive Date: 20120605
  Receipt Date: 20120531
  Transmission Date: 20120825
  Serious: Yes (Other)
  Sender: FDA-Public Use
  Company Number: US-MYLANLABS-2012S1010928

PATIENT
  Age: 42 Year
  Sex: Female
  Weight: 68.04 kg

DRUGS (10)
  1. FENTANYL-100 [Suspect]
     Indication: NEUROPATHY PERIPHERAL
     Dosage: Q48H
     Route: 062
     Dates: start: 20110101
  2. FENTANYL-100 [Suspect]
     Dosage: Q48H
     Route: 062
     Dates: start: 20110101
  3. CYMBALTA [Concomitant]
     Route: 048
  4. FENTANYL-100 [Suspect]
     Indication: BACK PAIN
     Dosage: Q48H
     Route: 062
     Dates: start: 20110101
  5. FENTANYL-100 [Suspect]
     Dosage: Q48H
     Route: 062
     Dates: start: 20110101
  6. ZYRTEC [Concomitant]
     Route: 048
  7. VITAMIN TAB [Concomitant]
     Route: 048
  8. VITAMIN B-12 [Concomitant]
     Route: 048
  9. CALCIUM [Concomitant]
     Route: 048
  10. KLONOPIN [Concomitant]
     Route: 048

REACTIONS (5)
  - LOSS OF CONSCIOUSNESS [None]
  - PAIN [None]
  - DRUG WITHDRAWAL SYNDROME [None]
  - SYNCOPE [None]
  - DRUG INEFFECTIVE [None]
